FAERS Safety Report 9660863 (Version 1)
Quarter: 2013Q4

REPORT INFORMATION
  Report Type: Spontaneous
  Country: DK (occurrence: DK)
  Receive Date: 20131031
  Receipt Date: 20131031
  Transmission Date: 20140711
  Serious: Yes (Hospitalization)
  Sender: FDA-Public Use
  Company Number: DK-TEVA-440291ISR

PATIENT
  Age: 68 Year
  Sex: Male
  Weight: 80 kg

DRUGS (7)
  1. AMLODIPINE [Suspect]
     Indication: PRODUCT USED FOR UNKNOWN INDICATION
     Dosage: DOSE: 1 TABLET, STRENGTH: 10 MG
     Route: 048
     Dates: start: 20130806, end: 20130906
  2. DIGOXIN [Concomitant]
     Indication: ATRIAL FIBRILLATION
  3. MEPRONET [Concomitant]
  4. COZAAR [Concomitant]
  5. FURIX [Concomitant]
  6. KALEORID [Concomitant]
  7. MAGNYL [Concomitant]

REACTIONS (3)
  - Oedema peripheral [Recovering/Resolving]
  - Pleural effusion [Recovering/Resolving]
  - Dyspnoea [Unknown]
